FAERS Safety Report 24695418 (Version 1)
Quarter: 2024Q4

REPORT INFORMATION
  Report Type: Spontaneous
  Country: US (occurrence: US)
  Receive Date: 20241204
  Receipt Date: 20241204
  Transmission Date: 20250114
  Serious: Yes (Other)
  Sender: STRIDES
  Company Number: US-STRIDES ARCOLAB LIMITED-2024SP016009

PATIENT
  Age: 7 Decade
  Sex: Female

DRUGS (1)
  1. METHOTREXATE [Suspect]
     Active Substance: METHOTREXATE
     Indication: Rheumatoid arthritis
     Dosage: UNK
     Route: 048

REACTIONS (3)
  - Mucocutaneous toxicity [Recovered/Resolved]
  - Bicytopenia [Unknown]
  - Toxicity to various agents [Recovered/Resolved]
